FAERS Safety Report 24679027 (Version 3)
Quarter: 2025Q3

REPORT INFORMATION
  Report Type: Spontaneous
  Country: JP (occurrence: JP)
  Receive Date: 20241129
  Receipt Date: 20250809
  Transmission Date: 20251021
  Serious: No
  Sender: ALEXION PHARMACEUTICALS
  Company Number: JP-ASTRAZENECA-240133682_061310_P_1

PATIENT
  Age: 4 Decade
  Sex: Female

DRUGS (3)
  1. ROSUVASTATIN [Suspect]
     Active Substance: ROSUVASTATIN
  2. ROSUVASTATIN [Suspect]
     Active Substance: ROSUVASTATIN
  3. ROSUVASTATIN [Suspect]
     Active Substance: ROSUVASTATIN

REACTIONS (2)
  - Exposure during pregnancy [Unknown]
  - Off label use [Unknown]
